FAERS Safety Report 17982939 (Version 2)
Quarter: 2020Q3

REPORT INFORMATION
  Report Type: Spontaneous
  Country: DE (occurrence: DE)
  Receive Date: 20200706
  Receipt Date: 20200714
  Transmission Date: 20201103
  Serious: Yes (Hospitalization)
  Sender: FDA-Public Use
  Company Number: DE-PFIZER INC-2020254792

PATIENT
  Age: 61 Year
  Sex: Female
  Weight: 90 kg

DRUGS (18)
  1. URAPIDIL [Interacting]
     Active Substance: URAPIDIL
     Dosage: 190 MG ON DAY 11
  2. URAPIDIL [Interacting]
     Active Substance: URAPIDIL
     Indication: HYPERTENSION
     Dosage: 520 MG ON DAY 1
  3. URAPIDIL [Interacting]
     Active Substance: URAPIDIL
     Dosage: 790 MG ON DAY 7
  4. URAPIDIL [Interacting]
     Active Substance: URAPIDIL
     Dosage: 620 MG ON DAY 9
  5. AMLODIPINE BESILATE [Interacting]
     Active Substance: AMLODIPINE BESYLATE
     Indication: HYPERTENSION
     Dosage: 10 MG, DAILY ON DAY 1?11
  6. URAPIDIL [Interacting]
     Active Substance: URAPIDIL
     Dosage: 200 MG ON DAY 10
  7. DOXAZOSIN MESILATE [Suspect]
     Active Substance: DOXAZOSIN MESYLATE
     Indication: HYPERTENSION
     Dosage: 16 MG, DAILY ON DAY 1?11
  8. URAPIDIL [Interacting]
     Active Substance: URAPIDIL
     Dosage: 610 MG ON DAY 3
  9. URAPIDIL [Interacting]
     Active Substance: URAPIDIL
     Dosage: 940 MG ON DAY 5 AND 6
  10. CHLORTALIDONE [Interacting]
     Active Substance: CHLORTHALIDONE
     Indication: HYPERTENSION
     Dosage: 25 MG, DAILY ON DAY 1?11
  11. VALSARTAN. [Interacting]
     Active Substance: VALSARTAN
     Indication: HYPERTENSION
     Dosage: 320 MG, DAILY ON DAY 1?11
  12. CLONIDINE. [Interacting]
     Active Substance: CLONIDINE
     Indication: HYPERTENSION
     Dosage: 475 UG, DAILY ON DAY 1?11
  13. URAPIDIL [Interacting]
     Active Substance: URAPIDIL
     Dosage: 530 MG ON DAY 2
  14. URAPIDIL [Interacting]
     Active Substance: URAPIDIL
     Dosage: 860 MG ON DAY 4
  15. RIFAMPICIN [Interacting]
     Active Substance: RIFAMPIN
     Indication: ANTI-INFECTIVE THERAPY
     Dosage: UNK
  16. RIFAMPICIN [Interacting]
     Active Substance: RIFAMPIN
     Indication: DEVICE RELATED INFECTION
  17. BISOPROLOL [Interacting]
     Active Substance: BISOPROLOL
     Indication: HYPERTENSION
     Dosage: 10 MG, DAILY ON DAY 1?11
  18. URAPIDIL [Interacting]
     Active Substance: URAPIDIL
     Dosage: 670 MG ON DAY 8

REACTIONS (2)
  - Drug interaction [Unknown]
  - Blood pressure increased [Recovered/Resolved]
